FAERS Safety Report 4530816-2 (Version None)
Quarter: 2004Q4

REPORT INFORMATION
  Report Type: 
  Country: None (occurrence: None)
  Receive Date: 20041129
  Receipt Date: 20040513
  Transmission Date: 20050328
  Serious: Yes (Hospitalization)
  Sender: FDA-Public Use
  Company Number: US_0405103084

PATIENT
  Age: 60 Year
  Sex: Male
  Weight: 111 kg

DRUGS (6)
  1. ZYPREXA [Suspect]
     Indication: BIPOLAR DISORDER
     Dosage: 25 MG/1 AT BEDTIME
     Dates: start: 20040203, end: 20040426
  2. ACETYLSALICYLIC ACID SRT [Concomitant]
  3. DIVALPROEX SODIUM [Concomitant]
  4. HIDROCHLOROTHIAZIDE/TRIAMTERENE [Concomitant]
  5. TEMAZEPAM [Concomitant]
  6. TRAZODONE [Concomitant]

REACTIONS (2)
  - DIABETES MELLITUS [None]
  - PRESCRIBED OVERDOSE [None]
